FAERS Safety Report 15458390 (Version 1)
Quarter: 2018Q3

REPORT INFORMATION
  Report Type: Spontaneous
  Country: US (occurrence: US)
  Receive Date: 20180930
  Receipt Date: 20180930
  Transmission Date: 20181010
  Serious: Yes (Other)
  Sender: FDA-Public Use
  Company Number: None

PATIENT
  Age: 26 Year
  Sex: Female
  Weight: 54 kg

DRUGS (2)
  1. CLINDAMYCIN. [Suspect]
     Active Substance: CLINDAMYCIN
     Indication: VAGINAL INFECTION
  2. CLOTRIMAZOLE. [Suspect]
     Active Substance: CLOTRIMAZOLE

REACTIONS (1)
  - Pruritus [None]

NARRATIVE: CASE EVENT DATE: 20180930
